FAERS Safety Report 9078339 (Version 1)
Quarter: 2013Q1

REPORT INFORMATION
  Report Type: Report from Study
  Country: US (occurrence: US)
  Receive Date: 20130130
  Receipt Date: 20130130
  Transmission Date: 20140127
  Serious: No
  Sender: FDA-Public Use
  Company Number: US-ABBOTT-12P-163-0972844-00

PATIENT
  Age: 64 Year
  Sex: Female

DRUGS (1)
  1. HUMIRA 40 MG/0.8 ML PEN [Suspect]
     Indication: RHEUMATOID ARTHRITIS
     Route: 058
     Dates: start: 20120723, end: 20120806

REACTIONS (9)
  - Blood urine present [Unknown]
  - Pyrexia [Unknown]
  - Infection [Unknown]
  - Rash [Unknown]
  - Skin discolouration [Unknown]
  - Lip discolouration [Unknown]
  - Decreased appetite [Unknown]
  - Immune system disorder [Unknown]
  - Asthenia [Not Recovered/Not Resolved]
